FAERS Safety Report 6014661-7 (Version None)
Quarter: 2008Q4

REPORT INFORMATION
  Report Type: 
  Country: None (occurrence: None)
  Receive Date: 20081219
  Receipt Date: 20081024
  Transmission Date: 20090506
  Serious: No
  Sender: FDA-Public Use
  Company Number: A0753502A

PATIENT
  Age: 75 Year
  Sex: Male

DRUGS (8)
  1. AVODART [Suspect]
     Indication: BENIGN PROSTATIC HYPERPLASIA
     Dosage: 1CAP ALTERNATE DAYS
     Route: 048
     Dates: start: 20080901
  2. CO Q10 [Concomitant]
  3. MULTI-VITAMIN [Concomitant]
  4. CALCIUM [Concomitant]
  5. MAGNESIUM SULFATE [Concomitant]
  6. UNKNOWN MEDICATION [Concomitant]
  7. FOLIC ACID [Concomitant]
  8. VITAMIN B-12 [Concomitant]

REACTIONS (1)
  - BLOOD CHOLESTEROL INCREASED [None]
